FAERS Safety Report 18202344 (Version 1)
Quarter: 2020Q3

REPORT INFORMATION
  Report Type: Spontaneous
  Country: FR (occurrence: FR)
  Receive Date: 20200827
  Receipt Date: 20200827
  Transmission Date: 20201103
  Serious: Yes (Other)
  Sender: FDA-Public Use
  Company Number: FR-SUN PHARMACEUTICAL INDUSTRIES LTD-2020RR-258655

PATIENT
  Sex: Male

DRUGS (2)
  1. CLOMIPRAMINE [Suspect]
     Active Substance: CLOMIPRAMINE
     Indication: OBSESSIVE-COMPULSIVE DISORDER
     Dosage: 150 MILLIGRAM, UNK
     Route: 065
  2. OLANZAPINE. [Suspect]
     Active Substance: OLANZAPINE
     Indication: OBSESSIVE-COMPULSIVE DISORDER
     Dosage: 7.5 MILLIGRAM, UNK
     Route: 065

REACTIONS (8)
  - Condition aggravated [Unknown]
  - Orthostatic hypotension [Unknown]
  - Dyspraxia [Unknown]
  - Confusional state [Recovering/Resolving]
  - Dysuria [Unknown]
  - Hallucination, visual [Unknown]
  - Sleep disorder [Unknown]
  - Dysphagia [Unknown]
